FAERS Safety Report 4423198-8 (Version None)
Quarter: 2004Q3

REPORT INFORMATION
  Report Type: 
  Country: None (occurrence: None)
  Receive Date: 20040809
  Receipt Date: 20040809
  Transmission Date: 20050211
  Serious: Yes (Other)
  Sender: FDA-Public Use
  Company Number: None

PATIENT
  Age: 26 Year
  Sex: Female
  Weight: 72.5755 kg

DRUGS (1)
  1. BUDEPRION 150 MG TEVA [Suspect]
     Indication: DEPRESSION
     Dosage: ONE PILL TWICE A DA ORAL
     Route: 048
     Dates: start: 20010515, end: 20040805

REACTIONS (7)
  - FATIGUE [None]
  - FLUID RETENTION [None]
  - IMPATIENCE [None]
  - IRRITABILITY [None]
  - MOOD SWINGS [None]
  - PHARMACEUTICAL PRODUCT COMPLAINT [None]
  - WEIGHT INCREASED [None]
